FAERS Safety Report 5272723-6 (Version None)
Quarter: 2007Q1

REPORT INFORMATION
  Report Type: 
  Country: None (occurrence: None)
  Receive Date: 20070322
  Receipt Date: 20070314
  Transmission Date: 20070707
  Serious: Yes (Life-Threatening, Hospitalization, Disabling)
  Sender: FDA-Public Use
  Company Number: US-MERCK-0703USA03211

PATIENT
  Age: 50 Year
  Sex: Female

DRUGS (1)
  1. MEVACOR [Suspect]
     Indication: BLOOD CHOLESTEROL
     Route: 048

REACTIONS (3)
  - ALANINE AMINOTRANSFERASE INCREASED [None]
  - BLOOD CREATINE PHOSPHOKINASE INCREASED [None]
  - RENAL IMPAIRMENT [None]
